FAERS Safety Report 4358143-7 (Version None)
Quarter: 2004Q2

REPORT INFORMATION
  Report Type: 
  Country: None (occurrence: None)
  Receive Date: 20040513
  Receipt Date: 20040513
  Transmission Date: 20050107
  Serious: Yes (Other)
  Sender: FDA-Public Use
  Company Number: None

PATIENT
  Age: 48 Year
  Sex: Female
  Weight: 63.5036 kg

DRUGS (2)
  1. COLD-EZE 13.3 MG ZINC QUIGLEY [Suspect]
     Indication: NASOPHARYNGITIS
     Dosage: 1 DROP PER DAY ORAL
     Route: 048
     Dates: start: 20040805, end: 20040805
  2. COLD-EZE 13.3 MG ZINC QUIGLEY [Suspect]
     Indication: PHARYNGOLARYNGEAL PAIN
     Dosage: 1 DROP PER DAY ORAL
     Route: 048
     Dates: start: 20040805, end: 20040805

REACTIONS (6)
  - AGEUSIA [None]
  - ANOSMIA [None]
  - COUGH [None]
  - GLOSSODYNIA [None]
  - HYPOAESTHESIA ORAL [None]
  - SALIVARY HYPERSECRETION [None]
